FAERS Safety Report 23762716 (Version 2)
Quarter: 2024Q2

REPORT INFORMATION
  Report Type: Report from Study
  Country: US (occurrence: US)
  Receive Date: 20240419
  Receipt Date: 20240620
  Transmission Date: 20240716
  Serious: No
  Sender: FDA-Public Use
  Company Number: US-ALXN-202404USA001128US

PATIENT
  Sex: Female

DRUGS (2)
  1. ULTOMIRIS [Suspect]
     Active Substance: RAVULIZUMAB-CWVZ
     Indication: Atypical haemolytic uraemic syndrome
     Dosage: UNK
     Route: 065
  2. OMEPRAZOLE [Suspect]
     Active Substance: DONEPEZIL HYDROCHLORIDE\OMEPRAZOLE\OMEPRAZOLE MAGNESIUM
     Indication: Hernia
     Dosage: UNK
     Route: 065

REACTIONS (8)
  - Limb discomfort [Not Recovered/Not Resolved]
  - Balance disorder [Unknown]
  - Renal disorder [Recovering/Resolving]
  - Malaise [Unknown]
  - Somnolence [Unknown]
  - Hernia [Unknown]
  - Dyspnoea [Unknown]
  - Abdominal discomfort [Unknown]
